FAERS Safety Report 4523554-3 (Version None)
Quarter: 2004Q4

REPORT INFORMATION
  Report Type: 
  Country: None (occurrence: None)
  Receive Date: 20041117
  Receipt Date: 20040823
  Transmission Date: 20050328
  Serious: Yes (Other)
  Sender: FDA-Public Use
  Company Number: JP-JNJFOC-20040807030

PATIENT
  Age: 62 Year
  Sex: Male

DRUGS (18)
  1. LEVOFLOXACIN [Suspect]
     Indication: PNEUMONIA
     Dosage: 500 MG, INTRAVENOUS
     Route: 042
     Dates: start: 20040108, end: 20040111
  2. FUROSEMIDE [Suspect]
     Indication: RENAL FAILURE
     Dosage: 10 ML
     Dates: start: 20040107, end: 20040117
  3. HL10 (OTHER RESPIRATORY SYSTEM PRODUCTS) [Suspect]
     Indication: RESPIRATORY DISORDER
     Dosage: 240 ML, INTRATRACHEAL
     Route: 039
     Dates: start: 20040107, end: 20040109
  4. ACETAMINOPHEN [Suspect]
     Indication: ANALGESIC EFFECT
     Dosage: 2.4 G, ORAL
     Route: 048
     Dates: start: 20040105
  5. ERYTHROMYCIN [Suspect]
     Indication: GASTROINTESTINAL DISORDER
     Dosage: 500 MG, INTRAVENOUS
     Route: 042
     Dates: start: 20040107, end: 20040127
  6. VANCOMYCIN [Suspect]
     Indication: PNEUMONIA
     Dosage: 1500 MG, INTRAVENOUS
     Route: 042
     Dates: start: 20040108, end: 20040112
  7. VECURONIUM (VECURONIUM) [Concomitant]
  8. OMEPRAZOLE [Concomitant]
  9. FENTANYL [Concomitant]
  10. PROPOFOL [Concomitant]
  11. ACTRAPID (INSULIN HUMAN) [Concomitant]
  12. POTASSIUM CHLORIDE [Concomitant]
  13. MIDAZOLAM HCL [Concomitant]
  14. SENNA (SENNA) [Concomitant]
  15. SODIUM DOCUSATE (DOCUSATE SODIUM) [Concomitant]
  16. TAZOCIN (PIP/TAZO) [Concomitant]
  17. MAGNESIUM (MAGNESIUM) [Concomitant]
  18. LINEZOLID (LINEZILID) [Concomitant]

REACTIONS (1)
  - RASH MACULO-PAPULAR [None]
